FAERS Safety Report 5515411-0 (Version None)
Quarter: 2007Q4

REPORT INFORMATION
  Report Type: 
  Country: None (occurrence: None)
  Receive Date: 20071113
  Receipt Date: 20070209
  Transmission Date: 20080405
  Serious: No
  Sender: FDA-Public Use
  Company Number: A0639051A

PATIENT
  Sex: Female

DRUGS (9)
  1. COREG [Suspect]
     Indication: HYPERTENSION
     Dosage: 25MG TWICE PER DAY
     Route: 048
     Dates: start: 20061001
  2. UNKNOWN MEDICATION [Concomitant]
  3. NIASPAN [Concomitant]
  4. ENTERA [Concomitant]
  5. METFORMIN HCL [Concomitant]
  6. AMARYL [Concomitant]
  7. LEVEMIR [Concomitant]
  8. ASPIRIN [Concomitant]
  9. VITAMIN CAP [Concomitant]

REACTIONS (1)
  - DRUG INEFFECTIVE [None]
